FAERS Safety Report 14939032 (Version 1)
Quarter: 2018Q2

REPORT INFORMATION
  Report Type: Spontaneous
  Country: JP (occurrence: JP)
  Receive Date: 20180525
  Receipt Date: 20180525
  Transmission Date: 20180711
  Serious: Yes (Other)
  Sender: FDA-Public Use
  Company Number: JP-PFIZER INC-2018206079

PATIENT
  Sex: Female

DRUGS (3)
  1. LYRICA [Suspect]
     Active Substance: PREGABALIN
     Dosage: 25 MG, 2X/DAY
     Route: 048
     Dates: start: 201805
  2. LYRICA [Suspect]
     Active Substance: PREGABALIN
     Indication: PAIN
     Dosage: 75 MG, AS NEEDED WHEN PAIN WAS NOTED
     Route: 048
  3. LYRICA [Suspect]
     Active Substance: PREGABALIN
     Indication: BACK PAIN
     Dosage: 75 MG, 2X/DAY (IN THE MORNING, AT NIGHT)
     Route: 048

REACTIONS (4)
  - Urinary retention [Unknown]
  - Metrorrhagia [Unknown]
  - Inappropriate schedule of drug administration [Unknown]
  - Urethral haemorrhage [Unknown]

NARRATIVE: CASE EVENT DATE: 201805
